FAERS Safety Report 5511240-2 (Version None)
Quarter: 2007Q4

REPORT INFORMATION
  Report Type: 
  Country: None (occurrence: None)
  Receive Date: 20071109
  Receipt Date: 20071029
  Transmission Date: 20080405
  Serious: Yes (Other)
  Sender: FDA-Public Use
  Company Number: BR-ROCHE-528828

PATIENT
  Age: 20 Year
  Sex: Female
  Weight: 47 kg

DRUGS (2)
  1. ISOTRETINOIN [Suspect]
     Indication: ACNE
     Route: 048
     Dates: start: 20070801, end: 20071015
  2. CONTRACEPTIVE DRUG NOS [Concomitant]
     Indication: CONTRACEPTION
     Route: 048
     Dates: start: 20070101, end: 20070101

REACTIONS (2)
  - NO ADVERSE EVENT [None]
  - PREGNANCY [None]
